FAERS Safety Report 7969252-5 (Version None)
Quarter: 2011Q4

REPORT INFORMATION
  Report Type: 
  Country: None (occurrence: None)
  Receive Date: 20111209
  Receipt Date: 20111130
  Transmission Date: 20120403
  Serious: Yes (Other)
  Sender: FDA-Public Use
  Company Number: FR-ASTRAZENECA-2011SE73145

PATIENT
  Age: 36 Year
  Sex: Female

DRUGS (6)
  1. QUETIAPINE FUMARATE [Suspect]
     Route: 048
     Dates: start: 20111101
  2. QUETIAPINE FUMARATE [Suspect]
     Route: 048
  3. INSULIN [Concomitant]
  4. QUETIAPINE FUMARATE [Suspect]
     Indication: SCHIZOAFFECTIVE DISORDER
     Route: 048
     Dates: start: 20111118, end: 20111101
  5. IMOVANE [Concomitant]
  6. GUTRON [Concomitant]

REACTIONS (4)
  - ORTHOSTATIC HYPOTENSION [None]
  - HALLUCINATION [None]
  - ENCEPHALOPATHY [None]
  - NIGHTMARE [None]
